FAERS Safety Report 7493816-9 (Version None)
Quarter: 2011Q2

REPORT INFORMATION
  Report Type: 
  Country: None (occurrence: None)
  Receive Date: 20110513
  Receipt Date: 20110505
  Transmission Date: 20111010
  Serious: Yes (Hospitalization)
  Sender: FDA-Public Use
  Company Number: TRP_07715_2011

PATIENT
  Age: 42 Year
  Sex: Female

DRUGS (2)
  1. RIBAVIRIN [Suspect]
     Indication: HEPATITIS C
     Dosage: (800 MG, DAILY)
     Dates: start: 20090101
  2. PEGINTERFERON (PEGYLATED INTERFERON) [Suspect]
     Indication: HEPATITIS C
     Dosage: (DF)
     Dates: start: 20090101

REACTIONS (17)
  - BLOOD CALCIUM DECREASED [None]
  - COELIAC DISEASE [None]
  - ASTHENIA [None]
  - RASH PAPULAR [None]
  - APHTHOUS STOMATITIS [None]
  - ABDOMINAL PAIN [None]
  - LICHEN PLANUS [None]
  - WEIGHT DECREASED [None]
  - DIARRHOEA [None]
  - MACROCYTOSIS [None]
  - DEHYDRATION [None]
  - BLOOD POTASSIUM DECREASED [None]
  - DERMATITIS HERPETIFORMIS [None]
  - ANAEMIA [None]
  - LEUKOPENIA [None]
  - PRURIGO [None]
  - PROTEIN TOTAL DECREASED [None]
